FAERS Safety Report 21103730 (Version 3)
Quarter: 2022Q3

REPORT INFORMATION
  Report Type: Spontaneous
  Country: CO (occurrence: CO)
  Receive Date: 20220720
  Receipt Date: 20220914
  Transmission Date: 20221026
  Serious: Yes (Hospitalization, Other)
  Sender: FDA-Public Use
  Company Number: CO-ORG100014127-2022000763

PATIENT
  Age: 32 Year
  Sex: Male

DRUGS (16)
  1. LYSODREN [Suspect]
     Active Substance: MITOTANE
     Indication: Adrenocortical carcinoma
     Dosage: 1000 MG EVERY 8  HOURS
     Route: 048
     Dates: start: 20220506, end: 20220609
  2. LYSODREN [Suspect]
     Active Substance: MITOTANE
     Indication: Adrenocortical carcinoma
     Route: 048
     Dates: start: 20220621
  3. LYSODREN [Suspect]
     Active Substance: MITOTANE
     Indication: Adrenocortical carcinoma
     Dosage: 1000 MG EVERY 6 HOURS
     Route: 048
     Dates: start: 2022
  4. HYDROCORTISONE [Concomitant]
     Active Substance: HYDROCORTISONE
     Indication: Product used for unknown indication
     Dosage: 10 MG EVERY 08 HOURS
     Dates: start: 202112
  5. ONDANSETRON [Concomitant]
     Active Substance: ONDANSETRON
     Indication: Product used for unknown indication
     Dosage: 10 MG EVERY 12 HOURS
  6. ONDANSETRON [Concomitant]
     Active Substance: ONDANSETRON
     Indication: Product used for unknown indication
     Dosage: 08 MG EVERY 08 HOURS
  7. Hisocin bromide [Concomitant]
     Indication: Pain
     Dates: start: 202205
  8. Hisocin bromide [Concomitant]
     Indication: Pain
     Dosage: 10 MG EVERY 08 HOURS
  9. ATORVASTATIN [Concomitant]
     Active Substance: ATORVASTATIN
     Indication: Product used for unknown indication
     Dosage: 40 MG
  10. Buprenorphine 35mcg [Concomitant]
     Indication: Product used for unknown indication
     Dosage: 1.5 PATCHES EVERY 72 HOURS
  11. HYDROMORPHONE [Concomitant]
     Active Substance: HYDROMORPHONE
     Indication: Pain
  12. DULOXETINE [Concomitant]
     Active Substance: DULOXETINE
     Indication: Product used for unknown indication
     Dosage: 60MG PO EVERY 24 HOURS
     Route: 048
  13. PREGABALIN [Concomitant]
     Active Substance: PREGABALIN
     Indication: Product used for unknown indication
     Dosage: 01 TABLET 150 MG EVERY 6 HOURS
     Route: 048
  14. Amiptriline [Concomitant]
     Indication: Product used for unknown indication
     Dosage: 50 MG PO EVERY NIGHT
     Route: 048
  15. LIDOCAINE PATCH [Concomitant]
     Active Substance: LIDOCAINE
     Indication: Pain
     Dosage: IN CASE OF GREATER PAIN FOR 12 HOURS
  16. OMEPRAZOLE [Concomitant]
     Active Substance: OMEPRAZOLE
     Indication: Product used for unknown indication
     Dosage: 20 MG ON AN EMPTY STOMACH
     Route: 048

REACTIONS (6)
  - Pneumonia [Unknown]
  - Back pain [Recovering/Resolving]
  - Abdominal pain [Unknown]
  - Vomiting [Recovering/Resolving]
  - Nausea [Recovering/Resolving]
  - Pyrexia [Unknown]

NARRATIVE: CASE EVENT DATE: 20220601
